FAERS Safety Report 4897429-4 (Version None)
Quarter: 2006Q1

REPORT INFORMATION
  Report Type: 
  Country: None (occurrence: None)
  Receive Date: 20060130
  Receipt Date: 20060130
  Transmission Date: 20060701
  Serious: Yes (Disabling)
  Sender: FDA-Public Use
  Company Number: None

PATIENT
  Age: 34 Year
  Sex: Female
  Weight: 68.2 kg

DRUGS (1)
  1. ENBREL [Suspect]
     Indication: PSORIASIS
     Dosage: 50MG   BIW X 3 MONTH   SQ;  NOW ON 50MG  ONCE A WEEK  SQ
     Route: 058
     Dates: start: 20051001, end: 20051201

REACTIONS (5)
  - EAR PAIN [None]
  - ENDODONTIC PROCEDURE [None]
  - GINGIVAL INFECTION [None]
  - PAIN IN JAW [None]
  - SINUSITIS [None]
